FAERS Safety Report 7833688-3 (Version None)
Quarter: 2011Q4

REPORT INFORMATION
  Report Type: 
  Country: None (occurrence: None)
  Receive Date: 20111024
  Receipt Date: 20111013
  Transmission Date: 20120403
  Serious: Yes (Hospitalization)
  Sender: FDA-Public Use
  Company Number: US-JNJFOC-20111006645

PATIENT
  Sex: Female
  Weight: 72.58 kg

DRUGS (7)
  1. FOLIC ACID [Concomitant]
  2. METHOTREXATE [Concomitant]
  3. REMICADE [Suspect]
     Indication: PSORIATIC ARTHROPATHY
     Route: 042
     Dates: start: 20060101
  4. CALCIUM CARBONATE [Concomitant]
  5. PRILOSEC [Concomitant]
  6. VITAMINS (NOS) [Concomitant]
  7. CITALOPRAM [Concomitant]
     Indication: ANTIDEPRESSANT THERAPY

REACTIONS (3)
  - NERVE COMPRESSION [None]
  - BACK DISORDER [None]
  - BACK PAIN [None]
